FAERS Safety Report 5481186-7 (Version None)
Quarter: 2007Q4

REPORT INFORMATION
  Report Type: 
  Country: None (occurrence: None)
  Receive Date: 20071010
  Receipt Date: 20071005
  Transmission Date: 20080405
  Serious: Yes (Death)
  Sender: FDA-Public Use
  Company Number: PHHO2007BR16529

PATIENT
  Age: 94 Year
  Sex: Female

DRUGS (1)
  1. FORADIL / FOR 258A / CGP 25827 [Suspect]

REACTIONS (1)
  - DEATH [None]
